FAERS Safety Report 20340389 (Version 4)
Quarter: 2022Q2

REPORT INFORMATION
  Report Type: Report from Study
  Country: US (occurrence: US)
  Receive Date: 20220117
  Receipt Date: 20220517
  Transmission Date: 20220721
  Serious: No
  Sender: FDA-Public Use
  Company Number: US-NOVARTISTESTPH-NVSC2022US007090

PATIENT
  Sex: Male

DRUGS (1)
  1. ENTRESTO [Suspect]
     Active Substance: SACUBITRIL\VALSARTAN
     Indication: Product used for unknown indication
     Dosage: 1 DOSAGE FORM, BID (49/51 MG)
     Route: 065
     Dates: start: 202109

REACTIONS (5)
  - Decreased activity [Unknown]
  - Seasonal allergy [Recovering/Resolving]
  - Electrocardiogram abnormal [Recovering/Resolving]
  - Cough [Recovering/Resolving]
  - Hypotension [Unknown]
